FAERS Safety Report 5656930-6 (Version None)
Quarter: 2008Q1

REPORT INFORMATION
  Report Type: 
  Country: None (occurrence: None)
  Receive Date: 20080219
  Receipt Date: 20071112
  Transmission Date: 20080703
  Serious: No
  Sender: FDA-Public Use
  Company Number: WAES 0711USA02465

PATIENT
  Age: 54 Year
  Sex: Female

DRUGS (7)
  1. JANUVIA [Suspect]
     Indication: TYPE 2 DIABETES MELLITUS
     Dosage: 100 MG/DAILY/PO
     Route: 048
     Dates: start: 20070228
  2. ENBREL [Concomitant]
  3. LIPITOR [Concomitant]
  4. MIRALAX [Concomitant]
  5. NAPROSYN [Concomitant]
  6. AMITRIPTYLINE HYDROCHLORIDE [Concomitant]
  7. METFORMIN [Concomitant]

REACTIONS (6)
  - EOSINOPHILIA [None]
  - FACE OEDEMA [None]
  - FATIGUE [None]
  - LYMPHADENOPATHY [None]
  - SWOLLEN TONGUE [None]
  - TONGUE ULCERATION [None]
